FAERS Safety Report 19979733 (Version 2)
Quarter: 2021Q4

REPORT INFORMATION
  Report Type: Spontaneous
  Country: AR (occurrence: AR)
  Receive Date: 20211021
  Receipt Date: 20211204
  Transmission Date: 20220303
  Serious: Yes (Other)
  Sender: FDA-Public Use
  Company Number: AR-NOVARTISPH-NVSC2021AR238043

PATIENT
  Sex: Female
  Weight: 84 kg

DRUGS (8)
  1. METFORMIN [Suspect]
     Active Substance: METFORMIN HYDROCHLORIDE
     Indication: Type 2 diabetes mellitus
     Dosage: UNK
     Route: 065
     Dates: start: 2010
  2. METFORMIN [Concomitant]
     Active Substance: METFORMIN HYDROCHLORIDE
     Indication: Product used for unknown indication
     Dosage: VILDAGLIPTIN 50 MG, METFORMIN 850 MG
     Route: 065
  3. PRISONIL D [Concomitant]
     Indication: Product used for unknown indication
     Dosage: UNK UNK, QD (LOSARTAN 100MG + HYDROCHLOROTHIAZIDE)
     Route: 065
  4. BIDECAR [Concomitant]
     Indication: Product used for unknown indication
     Dosage: UNK, QD (40)
     Route: 065
  5. LEVOTHYROXINE [Concomitant]
     Active Substance: LEVOTHYROXINE
     Indication: Hypothyroidism
     Dosage: UNK
     Route: 065
     Dates: start: 2010
  6. LOSARTAN [Concomitant]
     Active Substance: LOSARTAN
     Indication: Product used for unknown indication
     Route: 065
  7. HYDROCHLOROTHIAZIDE [Concomitant]
     Active Substance: HYDROCHLOROTHIAZIDE
     Indication: Product used for unknown indication
     Route: 065
  8. CARVEDILOL [Concomitant]
     Active Substance: CARVEDILOL
     Indication: Product used for unknown indication
     Route: 065

REACTIONS (12)
  - Cerebrovascular accident [Unknown]
  - Cerebral infarction [Unknown]
  - Diabetes mellitus [Unknown]
  - Cerebral microhaemorrhage [Unknown]
  - Amnesia [Unknown]
  - Fear [Unknown]
  - Blood glucose abnormal [Unknown]
  - Feeling of despair [Not Recovered/Not Resolved]
  - Dizziness [Not Recovered/Not Resolved]
  - Hypoaesthesia [Unknown]
  - Tachyphrenia [Unknown]
  - Weight decreased [Unknown]

NARRATIVE: CASE EVENT DATE: 20170101
